FAERS Safety Report 21699606 (Version 3)
Quarter: 2023Q1

REPORT INFORMATION
  Report Type: Spontaneous
  Country: US (occurrence: US)
  Receive Date: 20221208
  Receipt Date: 20230322
  Transmission Date: 20230418
  Serious: Yes (Hospitalization)
  Sender: FDA-Public Use
  Company Number: US-PFIZER INC-PV202200116258

PATIENT
  Age: 66 Year
  Sex: Female
  Weight: 58.96 kg

DRUGS (1)
  1. IBRANCE [Suspect]
     Active Substance: PALBOCICLIB
     Indication: Neoplasm malignant
     Dosage: UNK
     Dates: start: 20221205

REACTIONS (2)
  - Fatigue [Not Recovered/Not Resolved]
  - Asthenia [Unknown]
